FAERS Safety Report 12482515 (Version 1)
Quarter: 2016Q2

REPORT INFORMATION
  Report Type: Report from Study
  Country: ZA (occurrence: ZA)
  Receive Date: 20160620
  Receipt Date: 20160620
  Transmission Date: 20160815
  Serious: Yes (Death, Hospitalization)
  Sender: FDA-Public Use
  Company Number: ZA-IPCA LABORATORIES LIMITED-IPC201606-000508

PATIENT
  Age: 22 Month
  Sex: Male

DRUGS (1)
  1. PROPRANOLOL HYDROCHLORIDE. [Suspect]
     Active Substance: PROPRANOLOL HYDROCHLORIDE

REACTIONS (4)
  - Pneumatosis intestinalis [Unknown]
  - Intestinal ischaemia [Fatal]
  - Gastrointestinal necrosis [Fatal]
  - Circulatory collapse [Unknown]
